FAERS Safety Report 7516820-0 (Version None)
Quarter: 2011Q2

REPORT INFORMATION
  Report Type: 
  Country: None (occurrence: None)
  Receive Date: 20110601
  Receipt Date: 20110525
  Transmission Date: 20111010
  Serious: Yes (Disabling)
  Sender: FDA-Public Use
  Company Number: GB-MERCK-1105GBR00097

PATIENT
  Age: 68 Year
  Sex: Male
  Weight: 75 kg

DRUGS (8)
  1. ATORVASTATIN [Concomitant]
     Route: 065
     Dates: start: 20110208
  2. ASPIRIN [Concomitant]
     Route: 065
     Dates: start: 20110208
  3. FLUOXETINE [Concomitant]
     Route: 065
     Dates: start: 20110208
  4. FOSAMAX [Suspect]
     Route: 048
     Dates: start: 20110516
  5. ALBUTEROL [Concomitant]
     Route: 065
     Dates: start: 20110208, end: 20110503
  6. BISOPROLOL [Concomitant]
     Route: 065
     Dates: start: 20110208
  7. CALCIUM CARBONATE [Concomitant]
     Route: 065
     Dates: start: 20110510
  8. TIOTROPIUM BROMIDE [Concomitant]
     Route: 065
     Dates: start: 20110208, end: 20110505

REACTIONS (3)
  - GROIN PAIN [None]
  - ARTHRALGIA [None]
  - MYALGIA [None]
